FAERS Safety Report 6091912-4 (Version None)
Quarter: 2009Q1

REPORT INFORMATION
  Report Type: 
  Country: None (occurrence: None)
  Receive Date: 20090225
  Receipt Date: 20081006
  Transmission Date: 20090719
  Serious: No
  Sender: FDA-Public Use
  Company Number: A0749452A

PATIENT
  Age: 54 Year
  Sex: Female
  Weight: 67.3 kg

DRUGS (3)
  1. VALTREX [Suspect]
     Route: 048
     Dates: start: 20030301
  2. ALBUTEROL [Concomitant]
  3. HRT [Concomitant]

REACTIONS (2)
  - ORAL HERPES [None]
  - THERAPEUTIC RESPONSE DECREASED [None]
